FAERS Safety Report 6287687-6 (Version None)
Quarter: 2009Q3

REPORT INFORMATION
  Report Type: 
  Country: None (occurrence: None)
  Receive Date: 20090727
  Receipt Date: 20090727
  Transmission Date: 20100115
  Serious: Yes (Hospitalization, Disabling)
  Sender: FDA-Public Use
  Company Number: None

PATIENT
  Age: 19 Year
  Sex: Female
  Weight: 49.8957 kg

DRUGS (1)
  1. MIRENA [Suspect]
     Indication: CONTRACEPTION
     Dates: start: 20090301, end: 20090724

REACTIONS (6)
  - ANGER [None]
  - HAEMORRHAGE [None]
  - IUD MIGRATION [None]
  - NAUSEA [None]
  - NERVOUSNESS [None]
  - PAIN [None]
